FAERS Safety Report 21673264 (Version 5)
Quarter: 2024Q2

REPORT INFORMATION
  Report Type: Report from Study
  Country: CA (occurrence: CA)
  Receive Date: 20221202
  Receipt Date: 20240619
  Transmission Date: 20240715
  Serious: Yes (Other)
  Sender: FDA-Public Use
  Company Number: CA-MYLANLABS-2022M1081899

PATIENT

DRUGS (6)
  1. HULIO [Suspect]
     Active Substance: ADALIMUMAB-FKJP
     Indication: Crohn^s disease
     Dosage: 40 MILLIGRAM, Q2W (BIWEEKLY)
     Route: 058
  2. HULIO [Suspect]
     Active Substance: ADALIMUMAB-FKJP
     Dosage: UNK
     Route: 058
  3. HULIO [Suspect]
     Active Substance: ADALIMUMAB-FKJP
     Dosage: UNK
     Route: 058
  4. HULIO [Suspect]
     Active Substance: ADALIMUMAB-FKJP
     Dosage: 40 MILLIGRAM, QW (WEEKLY)
     Route: 058
     Dates: end: 20230424
  5. HULIO [Suspect]
     Active Substance: ADALIMUMAB-FKJP
     Dosage: 40 MG, QW
     Route: 058
     Dates: start: 20211025, end: 20231107
  6. ERENUMAB [Concomitant]
     Active Substance: ERENUMAB
     Indication: Product used for unknown indication
     Dosage: UNK
     Route: 065

REACTIONS (12)
  - Crohn^s disease [Unknown]
  - Ocular hyperaemia [Unknown]
  - Eye inflammation [Unknown]
  - Eye pain [Unknown]
  - Eye swelling [Recovering/Resolving]
  - COVID-19 [Unknown]
  - Injection site warmth [Unknown]
  - Injection site inflammation [Unknown]
  - Injection site rash [Unknown]
  - Rash [Unknown]
  - Off label use [Unknown]
  - Treatment failure [Unknown]

NARRATIVE: CASE EVENT DATE: 20221112
